FAERS Safety Report 8825790 (Version 1)
Quarter: 2012Q4

REPORT INFORMATION
  Report Type: 
  Country: US (occurrence: US)
  Receive Date: 20121004
  Receipt Date: 20121004
  Transmission Date: 20130627
  Serious: No
  Sender: FDA-Public Use
  Company Number: US-ASTRAZENECA-2012SE73844

PATIENT
  Age: 43 Year
  Sex: Female

DRUGS (2)
  1. SYMBICORT PMDI [Suspect]
     Indication: ASTHMA
     Dosage: 320 MG, BID
     Route: 055
     Dates: start: 20120809
  2. ALLEGRA [Concomitant]

REACTIONS (4)
  - Acne [Unknown]
  - Fatigue [Unknown]
  - Dysphonia [Unknown]
  - Pruritus [Unknown]
